FAERS Safety Report 6430528-4 (Version None)
Quarter: 2009Q4

REPORT INFORMATION
  Report Type: 
  Country: None (occurrence: None)
  Receive Date: 20091106
  Receipt Date: 20091026
  Transmission Date: 20100525
  Serious: Yes (Hospitalization)
  Sender: FDA-Public Use
  Company Number: A0810033B

PATIENT
  Sex: Female
  Weight: 81 kg

DRUGS (4)
  1. ELTROMBOPAG [Suspect]
     Indication: THROMBOCYTOPENIA
     Dosage: 25MG PER DAY
     Route: 048
     Dates: start: 20090422, end: 20091015
  2. PEGASYS [Suspect]
     Dosage: 180MCG WEEKLY
     Route: 058
     Dates: start: 20090422, end: 20091015
  3. COPEGUS [Suspect]
     Route: 048
     Dates: start: 20090422, end: 20091015
  4. ELTROMBOPAG [Suspect]
     Dosage: 25MG PER DAY
     Route: 048
     Dates: start: 20090409, end: 20090421

REACTIONS (6)
  - ABDOMINAL PAIN [None]
  - COUGH [None]
  - FEBRILE NEUTROPENIA [None]
  - HEPATITIS C RNA INCREASED [None]
  - PYREXIA [None]
  - TUBERCULOSIS [None]
